FAERS Safety Report 5474557-6 (Version None)
Quarter: 2007Q3

REPORT INFORMATION
  Report Type: 
  Country: None (occurrence: None)
  Receive Date: 20070831
  Receipt Date: 20070606
  Transmission Date: 20080115
  Serious: No
  Sender: FDA-Public Use
  Company Number: 240384

PATIENT
  Age: 80 Year
  Sex: Male

DRUGS (8)
  1. LUCENTIS [Suspect]
     Indication: MACULAR DEGENERATION
     Dates: start: 20070409
  2. ALTACE [Concomitant]
  3. FLOMAX [Concomitant]
  4. NEXIUM [Concomitant]
  5. ASPIRIN [Concomitant]
  6. CALCIUM (CALCIUM NOS) [Concomitant]
  7. VITAMIN (VITAMINS NOS) [Concomitant]
  8. LIPITOR [Concomitant]

REACTIONS (1)
  - VISION BLURRED [None]
